FAERS Safety Report 12199084 (Version 1)
Quarter: 2016Q1

REPORT INFORMATION
  Report Type: Spontaneous
  Country: FR (occurrence: FR)
  Receive Date: 20160322
  Receipt Date: 20160322
  Transmission Date: 20160526
  Serious: Yes (Hospitalization)
  Sender: FDA-Public Use
  Company Number: FR-SUN PHARMACEUTICAL INDUSTRIES LTD-2016R1-113341

PATIENT
  Age: 7 Year
  Sex: Female

DRUGS (1)
  1. PROMETHAZINE [Suspect]
     Active Substance: PROMETHAZINE\PROMETHAZINE HYDROCHLORIDE
     Indication: ANTITUSSIVE THERAPY
     Route: 065

REACTIONS (6)
  - Hallucination, tactile [Unknown]
  - Hallucination, visual [Unknown]
  - Pyrexia [Unknown]
  - Toxicity to various agents [Unknown]
  - Agitation [Unknown]
  - Encephalitis [Unknown]
